FAERS Safety Report 22141202 (Version 1)
Quarter: 2023Q1

REPORT INFORMATION
  Report Type: Spontaneous
  Country: US (occurrence: None)
  Receive Date: 20230324
  Receipt Date: 20230324
  Transmission Date: 20230417
  Serious: Yes (Other)
  Sender: FDA-Public Use
  Company Number: None

PATIENT
  Age: 31 Year
  Sex: Female
  Weight: 56.25 kg

DRUGS (1)
  1. TOPIRAMATE [Suspect]
     Active Substance: TOPIRAMATE
     Indication: Migraine
     Dates: start: 20171215, end: 20180101

REACTIONS (7)
  - Loss of consciousness [None]
  - Seizure [None]
  - Drug interaction [None]
  - Hypokinesia [None]
  - Hallucination [None]
  - Depersonalisation/derealisation disorder [None]
  - Derealisation [None]

NARRATIVE: CASE EVENT DATE: 20180101
